FAERS Safety Report 5894726-0 (Version None)
Quarter: 2008Q3

REPORT INFORMATION
  Report Type: 
  Country: None (occurrence: None)
  Receive Date: 20080924
  Receipt Date: 20080527
  Transmission Date: 20090109
  Serious: No
  Sender: FDA-Public Use
  Company Number: US-ASTRAZENECA-2008UW10746

PATIENT
  Age: 17092 Day
  Sex: Female
  Weight: 99.8 kg

DRUGS (5)
  1. SEROQUEL [Suspect]
     Route: 048
     Dates: start: 20080430
  2. DEPAKOTE [Concomitant]
  3. XANAX [Concomitant]
  4. AMBIEN [Concomitant]
  5. VICODIN ES [Concomitant]

REACTIONS (7)
  - ASTHENIA [None]
  - CONFUSIONAL STATE [None]
  - DIPLOPIA [None]
  - HYPERHIDROSIS [None]
  - MUSCLE SPASMS [None]
  - MYALGIA [None]
  - THIRST [None]
